FAERS Safety Report 12108756 (Version 1)
Quarter: 2016Q1

REPORT INFORMATION
  Report Type: Spontaneous
  Country: US (occurrence: None)
  Receive Date: 20160222
  Receipt Date: 20160222
  Transmission Date: 20160526
  Serious: Yes (Disabling, Other)
  Sender: FDA-Public Use
  Company Number: None

PATIENT
  Age: 39 Year
  Sex: Female
  Weight: 91.63 kg

DRUGS (1)
  1. MIRENA [Suspect]
     Active Substance: LEVONORGESTREL

REACTIONS (8)
  - Vaginal haemorrhage [None]
  - Emotional disorder [None]
  - Asthenia [None]
  - Depression [None]
  - Abdominal pain [None]
  - Pelvic inflammatory disease [None]
  - Weight increased [None]
  - Back pain [None]

NARRATIVE: CASE EVENT DATE: 20160202
